FAERS Safety Report 25282942 (Version 4)
Quarter: 2025Q3

REPORT INFORMATION
  Report Type: Spontaneous
  Country: CA (occurrence: CA)
  Receive Date: 20250508
  Receipt Date: 20250703
  Transmission Date: 20251021
  Serious: Yes (Other)
  Sender: PFIZER
  Company Number: CA-PFIZER INC-202500093887

PATIENT
  Age: 50 Year
  Sex: Female

DRUGS (2)
  1. ABRILADA [Suspect]
     Active Substance: ADALIMUMAB-AFZB
     Indication: Crohn^s disease
     Route: 058
     Dates: start: 20220501
  2. ABRILADA [Suspect]
     Active Substance: ADALIMUMAB-AFZB
     Route: 058
     Dates: start: 2025

REACTIONS (8)
  - Anorectal infection bacterial [Recovering/Resolving]
  - Proctalgia [Recovering/Resolving]
  - Rectal abscess [Recovering/Resolving]
  - Condition aggravated [Unknown]
  - Pyrexia [Recovering/Resolving]
  - Swelling [Recovering/Resolving]
  - Anorectal discomfort [Recovering/Resolving]
  - Fistula inflammation [Not Recovered/Not Resolved]
